FAERS Safety Report 6204198-4 (Version None)
Quarter: 2009Q2

REPORT INFORMATION
  Report Type: 
  Country: None (occurrence: None)
  Receive Date: 20090526
  Receipt Date: 20090526
  Transmission Date: 20091009
  Serious: Yes (Life-Threatening, Hospitalization)
  Sender: FDA-Public Use
  Company Number: None

PATIENT
  Sex: Female
  Weight: 90.7194 kg

DRUGS (1)
  1. LYBREL [Suspect]
     Indication: DYSMENORRHOEA
     Dosage: 0NE TABLET DAILY PO LESS THAN 2 YEARS
     Route: 048

REACTIONS (4)
  - HEADACHE [None]
  - INTRACRANIAL VENOUS SINUS THROMBOSIS [None]
  - JUGULAR VEIN THROMBOSIS [None]
  - TRANSVERSE SINUS THROMBOSIS [None]
